FAERS Safety Report 4474232-0 (Version None)
Quarter: 2004Q4

REPORT INFORMATION
  Report Type: 
  Country: None (occurrence: None)
  Receive Date: 20041014
  Receipt Date: 20040225
  Transmission Date: 20050328
  Serious: Yes (Hospitalization)
  Sender: FDA-Public Use
  Company Number: PHHO2004BE03176

PATIENT
  Age: 30 Year
  Sex: Female
  Weight: 78 kg

DRUGS (2)
  1. ZELMAC VS PLACEBO [Suspect]
     Indication: GASTROOESOPHAGEAL REFLUX DISEASE
     Dosage: 6 MG, BID
     Route: 048
     Dates: start: 20040206, end: 20040212
  2. ZELMAC VS PLACEBO [Suspect]
     Dosage: WASH-OUT PHASE
     Dates: start: 20040213

REACTIONS (1)
  - ABDOMINAL PAIN LOWER [None]
